FAERS Safety Report 6227378-0 (Version None)
Quarter: 2009Q2

REPORT INFORMATION
  Report Type: 
  Country: None (occurrence: None)
  Receive Date: 20090610
  Receipt Date: 20090604
  Transmission Date: 20091009
  Serious: Yes (Life-Threatening, Hospitalization)
  Sender: FDA-Public Use
  Company Number: 2007JP002227

PATIENT
  Age: 18 Year
  Sex: Female
  Weight: 50 kg

DRUGS (31)
  1. TACROLIMUS [Suspect]
     Indication: SYSTEMIC LUPUS ERYTHEMATOSUS
     Dosage: 2 MG, UID/QD, ORAL, 1 MG, D, ORAL, 2 MG, D, ORAL, 1 MG, D, ORAL, 2 MG, D, ORAL, 3 MG, D, ORAL
     Route: 048
     Dates: start: 20070411, end: 20070513
  2. TACROLIMUS [Suspect]
     Indication: SYSTEMIC LUPUS ERYTHEMATOSUS
     Dosage: 2 MG, UID/QD, ORAL, 1 MG, D, ORAL, 2 MG, D, ORAL, 1 MG, D, ORAL, 2 MG, D, ORAL, 3 MG, D, ORAL
     Route: 048
     Dates: start: 20070820, end: 20070918
  3. TACROLIMUS [Suspect]
     Indication: SYSTEMIC LUPUS ERYTHEMATOSUS
     Dosage: 2 MG, UID/QD, ORAL, 1 MG, D, ORAL, 2 MG, D, ORAL, 1 MG, D, ORAL, 2 MG, D, ORAL, 3 MG, D, ORAL
     Route: 048
     Dates: start: 20070919, end: 20080203
  4. TACROLIMUS [Suspect]
     Indication: SYSTEMIC LUPUS ERYTHEMATOSUS
     Dosage: 2 MG, UID/QD, ORAL, 1 MG, D, ORAL, 2 MG, D, ORAL, 1 MG, D, ORAL, 2 MG, D, ORAL, 3 MG, D, ORAL
     Route: 048
     Dates: start: 20080325, end: 20080501
  5. TACROLIMUS [Suspect]
     Indication: SYSTEMIC LUPUS ERYTHEMATOSUS
     Dosage: 2 MG, UID/QD, ORAL, 1 MG, D, ORAL, 2 MG, D, ORAL, 1 MG, D, ORAL, 2 MG, D, ORAL, 3 MG, D, ORAL
     Route: 048
     Dates: start: 20080502, end: 20081009
  6. TACROLIMUS [Suspect]
     Indication: SYSTEMIC LUPUS ERYTHEMATOSUS
     Dosage: 2 MG, UID/QD, ORAL, 1 MG, D, ORAL, 2 MG, D, ORAL, 1 MG, D, ORAL, 2 MG, D, ORAL, 3 MG, D, ORAL
     Route: 048
     Dates: start: 20081010
  7. PREDNISOLONE [Suspect]
     Indication: LUPUS NEPHRITIS
     Dosage: SEE IMAGE, ORAL
     Route: 048
     Dates: start: 20020901, end: 20070610
  8. PREDNISOLONE [Suspect]
     Indication: LUPUS NEPHRITIS
     Dosage: SEE IMAGE, ORAL
     Route: 048
     Dates: start: 20070611, end: 20070624
  9. PREDNISOLONE [Suspect]
     Indication: LUPUS NEPHRITIS
     Dosage: SEE IMAGE, ORAL
     Route: 048
     Dates: start: 20070625, end: 20070708
  10. PREDNISOLONE [Suspect]
     Indication: LUPUS NEPHRITIS
     Dosage: SEE IMAGE, ORAL
     Route: 048
     Dates: start: 20070709, end: 20070819
  11. PREDNISOLONE [Suspect]
     Indication: LUPUS NEPHRITIS
     Dosage: SEE IMAGE, ORAL
     Route: 048
     Dates: start: 20070820, end: 20070918
  12. PREDNISOLONE [Suspect]
     Indication: LUPUS NEPHRITIS
     Dosage: SEE IMAGE, ORAL
     Route: 048
     Dates: start: 20070919, end: 20080203
  13. PREDNISOLONE [Suspect]
     Indication: LUPUS NEPHRITIS
     Dosage: SEE IMAGE, ORAL
     Route: 048
     Dates: start: 20080204, end: 20080209
  14. PREDNISOLONE [Suspect]
     Indication: LUPUS NEPHRITIS
     Dosage: SEE IMAGE, ORAL
     Route: 048
     Dates: start: 20080210, end: 20081211
  15. PREDNISOLONE [Suspect]
     Indication: LUPUS NEPHRITIS
     Dosage: SEE IMAGE, ORAL
     Route: 048
     Dates: start: 20081212, end: 20090115
  16. PREDNISOLONE [Suspect]
     Indication: LUPUS NEPHRITIS
     Dosage: SEE IMAGE, ORAL
     Route: 048
     Dates: start: 20080212
  17. PREDNISOLONE [Suspect]
     Indication: LUPUS NEPHRITIS
     Dosage: SEE IMAGE, ORAL
     Route: 048
     Dates: start: 20090116
  18. WARFARIN SODIUM [Suspect]
     Indication: SYSTEMIC LUPUS ERYTHEMATOSUS
     Dosage: 1 MG, UID/QD, ORAL
     Route: 048
     Dates: end: 20080204
  19. AMLODIPINE BESYLATE [Concomitant]
  20. LUPRAC (TORASEMIDE) [Concomitant]
  21. ONEALFA (ALFACALCIDOL) [Concomitant]
  22. FERROMIA (FERROUS CITRATE) [Concomitant]
  23. BEZATOL (BEZAFIBRATE) [Concomitant]
  24. RABEPRAZOLE SODIUM [Concomitant]
  25. PERSANTIN [Concomitant]
  26. ISONIAZID [Concomitant]
  27. PYDOXAL [Concomitant]
  28. DOXAZOSIN MESYLATE [Concomitant]
  29. FAMOTIDINE [Concomitant]
  30. NIZATIDINE [Concomitant]
  31. PREDNISOLONE [Concomitant]

REACTIONS (5)
  - ARTHRALGIA [None]
  - BACK PAIN [None]
  - DIARRHOEA [None]
  - LOWER GASTROINTESTINAL HAEMORRHAGE [None]
  - VARICELLA [None]
